FAERS Safety Report 5039015-1 (Version None)
Quarter: 2006Q2

REPORT INFORMATION
  Report Type: 
  Country: None (occurrence: None)
  Receive Date: 20060601
  Receipt Date: 20060112
  Transmission Date: 20061013
  Serious: No
  Sender: FDA-Public Use
  Company Number: 2006PV006998

PATIENT
  Age: 70 Year
  Sex: Female
  Weight: 99.7913 kg

DRUGS (9)
  1. BYETTA [Suspect]
     Indication: DIABETES MELLITUS NON-INSULIN-DEPENDENT
     Dosage: 5 MCG;BID;SC
     Route: 058
     Dates: start: 20060101
  2. LISINOPRIL [Concomitant]
  3. CLONIDINE [Concomitant]
  4. TOPROL-XL [Concomitant]
  5. LABETALOL HCL [Concomitant]
  6. COZAAR [Concomitant]
  7. NORVASC [Concomitant]
  8. FIORICET [Concomitant]
  9. HYDROCHLOROTHIAZIDE [Concomitant]

REACTIONS (3)
  - EMOTIONAL DISTRESS [None]
  - HEADACHE [None]
  - HYPERTENSION [None]
